FAERS Safety Report 10428818 (Version 41)
Quarter: 2025Q3

REPORT INFORMATION
  Report Type: Report from Study
  Country: CA (occurrence: CA)
  Receive Date: 20140904
  Receipt Date: 20250902
  Transmission Date: 20251020
  Serious: Yes (Hospitalization, Other)
  Sender: ROCHE
  Company Number: CA-ROCHE-1457280

PATIENT
  Age: 54 Year
  Sex: Female
  Weight: 80.0 kg

DRUGS (55)
  1. XOLAIR [Suspect]
     Active Substance: OMALIZUMAB
     Indication: Asthma
     Route: 058
     Dates: start: 20131024
  2. XOLAIR [Suspect]
     Active Substance: OMALIZUMAB
     Route: 058
     Dates: start: 20140130
  3. XOLAIR [Suspect]
     Active Substance: OMALIZUMAB
     Route: 058
     Dates: start: 20141231
  4. XOLAIR [Suspect]
     Active Substance: OMALIZUMAB
     Route: 058
     Dates: start: 20150224
  5. XOLAIR [Suspect]
     Active Substance: OMALIZUMAB
     Route: 058
     Dates: start: 20150312
  6. XOLAIR [Suspect]
     Active Substance: OMALIZUMAB
     Route: 058
     Dates: start: 20150326
  7. XOLAIR [Suspect]
     Active Substance: OMALIZUMAB
     Route: 058
     Dates: start: 20150409
  8. XOLAIR [Suspect]
     Active Substance: OMALIZUMAB
     Route: 058
     Dates: start: 20150507
  9. XOLAIR [Suspect]
     Active Substance: OMALIZUMAB
     Route: 058
     Dates: start: 20150521
  10. XOLAIR [Suspect]
     Active Substance: OMALIZUMAB
     Route: 058
     Dates: start: 20150723
  11. XOLAIR [Suspect]
     Active Substance: OMALIZUMAB
     Route: 058
     Dates: start: 20160114
  12. XOLAIR [Suspect]
     Active Substance: OMALIZUMAB
     Route: 058
     Dates: start: 20160308
  13. XOLAIR [Suspect]
     Active Substance: OMALIZUMAB
     Route: 058
     Dates: start: 20160324
  14. XOLAIR [Suspect]
     Active Substance: OMALIZUMAB
     Route: 058
     Dates: start: 20160421
  15. XOLAIR [Suspect]
     Active Substance: OMALIZUMAB
     Route: 058
     Dates: start: 20160602
  16. XOLAIR [Suspect]
     Active Substance: OMALIZUMAB
     Route: 058
     Dates: start: 20160616
  17. XOLAIR [Suspect]
     Active Substance: OMALIZUMAB
     Route: 058
     Dates: start: 20161004
  18. XOLAIR [Suspect]
     Active Substance: OMALIZUMAB
     Route: 058
     Dates: start: 20161018
  19. XOLAIR [Suspect]
     Active Substance: OMALIZUMAB
     Route: 058
     Dates: start: 20161115
  20. XOLAIR [Suspect]
     Active Substance: OMALIZUMAB
     Route: 058
     Dates: start: 20170209
  21. XOLAIR [Suspect]
     Active Substance: OMALIZUMAB
     Route: 058
     Dates: start: 20170224
  22. XOLAIR [Suspect]
     Active Substance: OMALIZUMAB
     Route: 058
     Dates: start: 20171006
  23. XOLAIR [Suspect]
     Active Substance: OMALIZUMAB
     Route: 058
     Dates: start: 20180223
  24. XOLAIR [Suspect]
     Active Substance: OMALIZUMAB
     Route: 058
     Dates: start: 20180406
  25. XOLAIR [Suspect]
     Active Substance: OMALIZUMAB
     Route: 058
     Dates: start: 20180420
  26. XOLAIR [Suspect]
     Active Substance: OMALIZUMAB
     Route: 058
     Dates: start: 20180518
  27. XOLAIR [Suspect]
     Active Substance: OMALIZUMAB
     Route: 058
     Dates: start: 20180922
  28. XOLAIR [Suspect]
     Active Substance: OMALIZUMAB
     Route: 058
     Dates: start: 20190705
  29. XOLAIR [Suspect]
     Active Substance: OMALIZUMAB
     Route: 058
     Dates: start: 20190715
  30. XOLAIR [Suspect]
     Active Substance: OMALIZUMAB
     Route: 058
     Dates: start: 20190730
  31. XOLAIR [Suspect]
     Active Substance: OMALIZUMAB
     Route: 058
     Dates: start: 20190813
  32. XOLAIR [Suspect]
     Active Substance: OMALIZUMAB
     Route: 058
     Dates: start: 20190826
  33. XOLAIR [Suspect]
     Active Substance: OMALIZUMAB
     Route: 058
     Dates: start: 20191021
  34. XOLAIR [Suspect]
     Active Substance: OMALIZUMAB
     Route: 058
     Dates: start: 20180314
  35. XOLAIR [Suspect]
     Active Substance: OMALIZUMAB
     Route: 058
     Dates: start: 20150130
  36. XOLAIR [Suspect]
     Active Substance: OMALIZUMAB
     Route: 058
  37. XOLAIR [Suspect]
     Active Substance: OMALIZUMAB
     Dosage: 450 MG, BIW
     Route: 058
     Dates: start: 20210603
  38. XOLAIR [Suspect]
     Active Substance: OMALIZUMAB
     Route: 058
  39. XOLAIR [Suspect]
     Active Substance: OMALIZUMAB
     Route: 058
  40. XOLAIR [Suspect]
     Active Substance: OMALIZUMAB
     Route: 058
  41. XOLAIR [Suspect]
     Active Substance: OMALIZUMAB
     Dosage: 450 MG, BIW
     Route: 058
     Dates: start: 20221122
  42. XOLAIR [Suspect]
     Active Substance: OMALIZUMAB
     Route: 058
  43. XOLAIR [Suspect]
     Active Substance: OMALIZUMAB
     Route: 058
  44. XOLAIR [Suspect]
     Active Substance: OMALIZUMAB
     Route: 058
  45. XOLAIR [Suspect]
     Active Substance: OMALIZUMAB
     Route: 058
  46. XOLAIR [Suspect]
     Active Substance: OMALIZUMAB
     Route: 058
  47. XOLAIR [Suspect]
     Active Substance: OMALIZUMAB
     Route: 058
  48. XOLAIR [Suspect]
     Active Substance: OMALIZUMAB
     Route: 058
  49. XOLAIR [Suspect]
     Active Substance: OMALIZUMAB
     Route: 058
  50. XOLAIR [Suspect]
     Active Substance: OMALIZUMAB
     Route: 058
  51. XOLAIR [Suspect]
     Active Substance: OMALIZUMAB
     Route: 058
  52. XOLAIR [Suspect]
     Active Substance: OMALIZUMAB
     Route: 058
  53. XOLAIR [Suspect]
     Active Substance: OMALIZUMAB
     Route: 058
  54. XOLAIR [Suspect]
     Active Substance: OMALIZUMAB
     Route: 058
  55. INFLUENZA VIRUS VACCINE [Suspect]
     Active Substance: INFLUENZA VIRUS VACCINE
     Indication: Product used for unknown indication
     Route: 065

REACTIONS (40)
  - Pyrexia [Unknown]
  - Chills [Unknown]
  - Nausea [Unknown]
  - Somnolence [Unknown]
  - Malaise [Unknown]
  - Pneumonia [Unknown]
  - Hypersensitivity [Not Recovered/Not Resolved]
  - Asthma [Unknown]
  - Clostridial infection [Recovered/Resolved]
  - Road traffic accident [Unknown]
  - Body temperature decreased [Unknown]
  - Urticaria [Unknown]
  - Pallor [Unknown]
  - Dyspnoea exertional [Unknown]
  - Stress [Unknown]
  - Dyspnoea [Unknown]
  - Aphonia [Unknown]
  - Gallbladder disorder [Unknown]
  - Decreased appetite [Unknown]
  - Weight decreased [Unknown]
  - Wheezing [Unknown]
  - Forced expiratory volume decreased [Unknown]
  - Cough [Unknown]
  - Gastritis bacterial [Recovered/Resolved]
  - Heart rate increased [Unknown]
  - Pain in extremity [Recovering/Resolving]
  - Gout [Recovering/Resolving]
  - Back pain [Unknown]
  - Animal bite [Unknown]
  - Infected bite [Recovered/Resolved]
  - Wound [Not Recovered/Not Resolved]
  - Decreased activity [Unknown]
  - Obstructive airways disorder [Unknown]
  - Arthralgia [Unknown]
  - Headache [Recovering/Resolving]
  - Fall [Unknown]
  - Contusion [Unknown]
  - Incorrect dose administered [Unknown]
  - Inappropriate schedule of product administration [Unknown]
  - Product dose omission issue [Unknown]

NARRATIVE: CASE EVENT DATE: 20140130
